FAERS Safety Report 5940587-0 (Version None)
Quarter: 2008Q4

REPORT INFORMATION
  Report Type: 
  Country: None (occurrence: None)
  Receive Date: 20081103
  Receipt Date: 20081103
  Transmission Date: 20090506
  Serious: Yes (Other)
  Sender: FDA-Public Use
  Company Number: None

PATIENT
  Sex: Female
  Weight: 61.6892 kg

DRUGS (1)
  1. LEVOTHYROXINE SODIUM [Suspect]
     Indication: RADIOACTIVE IODINE THERAPY
     Dosage: 1 T DAILY PO
     Route: 048

REACTIONS (2)
  - BASEDOW'S DISEASE [None]
  - THERAPEUTIC RESPONSE UNEXPECTED WITH DRUG SUBSTITUTION [None]
